FAERS Safety Report 8179926-1 (Version None)
Quarter: 2012Q1

REPORT INFORMATION
  Report Type: 
  Country: None (occurrence: None)
  Receive Date: 20120302
  Receipt Date: 20120228
  Transmission Date: 20120608
  Serious: Yes (Other)
  Sender: FDA-Public Use
  Company Number: NL-PFIZER INC-2009165580

PATIENT
  Sex: Female
  Weight: 3.35 kg

DRUGS (2)
  1. LAMIVUDINE + ZIDOVUDINE [Suspect]
     Indication: HIV INFECTION
  2. NELFINAVIR MESYLATE [Suspect]
     Indication: HIV INFECTION

REACTIONS (2)
  - FOETAL EXPOSURE DURING PREGNANCY [None]
  - NECROTISING COLITIS [None]
